FAERS Safety Report 5609805-2 (Version None)
Quarter: 2008Q1

REPORT INFORMATION
  Report Type: 
  Country: None (occurrence: None)
  Receive Date: 20080131
  Receipt Date: 20071207
  Transmission Date: 20080703
  Serious: No
  Sender: FDA-Public Use
  Company Number: US-BAYER-200714100BCC

PATIENT
  Age: 86 Year
  Sex: Female
  Weight: 54 kg

DRUGS (7)
  1. ALEVE [Suspect]
     Indication: DRUG USE FOR UNKNOWN INDICATION
     Dosage: AS USED: 220 MG  UNIT DOSE: 220 MG
     Route: 048
     Dates: start: 20071201, end: 20071207
  2. LIPITOR [Concomitant]
  3. ATENOLOL [Concomitant]
  4. FUROSEMIDE [Concomitant]
  5. AMLODIPINE BESYLATE [Concomitant]
  6. INDOMETHACIN [Concomitant]
  7. IRON [Concomitant]

REACTIONS (2)
  - CONTUSION [None]
  - DIZZINESS [None]
